FAERS Safety Report 12497868 (Version 2)
Quarter: 2016Q4

REPORT INFORMATION
  Report Type: Other
  Country: GB (occurrence: GB)
  Receive Date: 20160625
  Receipt Date: 20161111
  Transmission Date: 20170207
  Serious: Yes (Other)
  Sender: FDA-Public Use
  Company Number: GB-APOTEX-2016AP009328

PATIENT
  Age: 19 Year
  Sex: Male

DRUGS (8)
  1. PROZAC [Concomitant]
     Active Substance: FLUOXETINE HYDROCHLORIDE
     Indication: PRODUCT USED FOR UNKNOWN INDICATION
     Dosage: 20 MG, Q.O.D.
     Dates: start: 19961210
  2. PAXIL [Suspect]
     Active Substance: PAROXETINE HYDROCHLORIDE
     Indication: DEPRESSION
     Dosage: UNK
     Route: 065
     Dates: start: 20000630, end: 20010726
  3. PROZAC [Concomitant]
     Active Substance: FLUOXETINE HYDROCHLORIDE
     Dosage: 20 MG, DAILY
     Route: 065
  4. PAROXETINE. [Suspect]
     Active Substance: PAROXETINE
     Dosage: 20 MG, DAILY
     Route: 065
  5. PAROXETINE. [Suspect]
     Active Substance: PAROXETINE
     Dosage: 30 MG, DAILY
     Route: 065
     Dates: start: 200110
  6. PAROXETINE. [Suspect]
     Active Substance: PAROXETINE
     Indication: DEPRESSION
     Dosage: 20 MG, QD
     Route: 065
     Dates: start: 20000630, end: 20021004
  7. PAROXETINE. [Suspect]
     Active Substance: PAROXETINE
     Dosage: UNK
     Route: 065
     Dates: end: 200209
  8. CIPRAMIL                           /00582602/ [Concomitant]
     Active Substance: CITALOPRAM HYDROBROMIDE
     Indication: PRODUCT USED FOR UNKNOWN INDICATION
     Dosage: 1 DF, SINGLE
     Route: 065
     Dates: start: 20010726

REACTIONS (22)
  - Aggression [Unknown]
  - Sleep disorder [Unknown]
  - Feeling abnormal [Unknown]
  - Nausea [Unknown]
  - Malaise [Unknown]
  - Abdominal discomfort [Unknown]
  - Anxiety [Unknown]
  - Lethargy [Unknown]
  - Irritability [Unknown]
  - Suicidal ideation [Unknown]
  - Condition aggravated [Unknown]
  - Frustration tolerance decreased [Unknown]
  - Panic reaction [Unknown]
  - Social anxiety disorder [Unknown]
  - Vomiting [Unknown]
  - Agitation [Unknown]
  - Depressed mood [Unknown]
  - Rash [Unknown]
  - Hyperhidrosis [Unknown]
  - Intentional self-injury [Unknown]
  - Drug withdrawal syndrome [Unknown]
  - Agoraphobia [Unknown]

NARRATIVE: CASE EVENT DATE: 20000805
